FAERS Safety Report 6943466-5 (Version None)
Quarter: 2010Q3

REPORT INFORMATION
  Report Type: 
  Country: None (occurrence: None)
  Receive Date: 20100823
  Receipt Date: 20100813
  Transmission Date: 20110219
  Serious: Yes (Other)
  Sender: FDA-Public Use
  Company Number: GRP10000074

PATIENT
  Sex: Female

DRUGS (2)
  1. ACTONEL PLUS CALCIUM D (RISEDRONATE SODIUM 35 MG, CALCIUM CARBONATE 25 [Suspect]
     Indication: OSTEOPOROSIS
     Dosage: 1 DOSE FORM CYCLICALLY, ORAL
     Route: 048
     Dates: start: 20080101
  2. IMMUNOSUPPRESSANTS [Concomitant]

REACTIONS (2)
  - CONDITION AGGRAVATED [None]
  - MACULAR DEGENERATION [None]
